FAERS Safety Report 10540135 (Version 1)
Quarter: 2014Q4

REPORT INFORMATION
  Report Type: Spontaneous
  Country: US (occurrence: None)
  Receive Date: 20141023
  Receipt Date: 20141023
  Transmission Date: 20150529
  Serious: Yes (Disabling)
  Sender: FDA-Public Use
  Company Number: None

PATIENT
  Age: 48 Year
  Sex: Female
  Weight: 48.54 kg

DRUGS (2)
  1. CIPRO [Suspect]
     Active Substance: CIPROFLOXACIN HYDROCHLORIDE
     Indication: URINARY TRACT INFECTION
     Dosage: 1, TWICE DAILY, TAKEN BY MOUTH
     Route: 048
  2. CIPRO [Suspect]
     Active Substance: CIPROFLOXACIN HYDROCHLORIDE
     Dosage: 1, TWICE DAILY, TAKEN BY MOUTH
     Route: 048

REACTIONS (3)
  - Pain [None]
  - Uterine leiomyoma [None]
  - Ovarian cyst [None]

NARRATIVE: CASE EVENT DATE: 20141008
